FAERS Safety Report 23135820 (Version 5)
Quarter: 2023Q4

REPORT INFORMATION
  Report Type: Spontaneous
  Country: AU (occurrence: AU)
  Receive Date: 20231101
  Receipt Date: 20231207
  Transmission Date: 20240109
  Serious: Yes (Other)
  Sender: FDA-Public Use
  Company Number: AU-BAYER-2023A154873

PATIENT
  Age: 80 Year
  Sex: Female

DRUGS (4)
  1. XARELTO [Suspect]
     Active Substance: RIVAROXABAN
     Indication: Anticoagulant therapy
     Route: 048
  2. XARELTO [Suspect]
     Active Substance: RIVAROXABAN
     Indication: Pulmonary embolism
  3. ASPIRIN [Suspect]
     Active Substance: ASPIRIN
     Indication: Myocardial ischaemia
     Route: 065
  4. SACUBITRIL\VALSARTAN [Concomitant]
     Active Substance: SACUBITRIL\VALSARTAN
     Indication: Left ventricular failure

REACTIONS (7)
  - Subarachnoid haemorrhage [Recovered/Resolved]
  - Post procedural complication [Recovered/Resolved]
  - Somnolence [Recovering/Resolving]
  - Meningism [Recovered/Resolved]
  - Delirium [Recovered/Resolved]
  - IIIrd nerve paralysis [Recovered/Resolved]
  - Eyelid ptosis [Recovered/Resolved]
